FAERS Safety Report 4524692-1 (Version None)
Quarter: 2004Q4

REPORT INFORMATION
  Report Type: 
  Country: None (occurrence: None)
  Receive Date: 20041211
  Receipt Date: 20041008
  Transmission Date: 20050328
  Serious: Yes (Life-Threatening, Hospitalization)
  Sender: FDA-Public Use
  Company Number: DE-MERCK-0410DEU00266

PATIENT
  Age: 47 Year
  Sex: Male

DRUGS (5)
  1. VIOXX [Suspect]
     Indication: ARTHRALGIA
     Route: 048
     Dates: start: 20010402, end: 20040801
  2. VIOXX [Suspect]
     Indication: ROTATOR CUFF SYNDROME
     Route: 048
     Dates: start: 20010402, end: 20040801
  3. ALLOPURINOL [Concomitant]
     Route: 065
     Dates: start: 19981001
  4. SILIBININ [Concomitant]
     Route: 065
     Dates: start: 20010901
  5. CYNARA [Concomitant]
     Route: 065
     Dates: start: 20020401

REACTIONS (1)
  - MYOCARDIAL INFARCTION [None]
